FAERS Safety Report 6456637-1 (Version None)
Quarter: 2009Q4

REPORT INFORMATION
  Report Type: 
  Country: None (occurrence: None)
  Receive Date: 20091119
  Receipt Date: 20091104
  Transmission Date: 20100525
  Serious: Yes (Hospitalization)
  Sender: FDA-Public Use
  Company Number: 8050139

PATIENT
  Age: 62 Year
  Sex: Female
  Weight: 43 kg

DRUGS (22)
  1. CDP870 [Suspect]
     Indication: CROHN'S DISEASE
     Dosage: 400 MG /M SC
     Route: 058
     Dates: start: 20050330
  2. PENTASA [Concomitant]
  3. DECORTIN [Concomitant]
  4. BUDESONIDE [Concomitant]
  5. SEVREDOL [Concomitant]
  6. DURAGESIC-100 [Concomitant]
  7. TALVOSILEN [Concomitant]
  8. IMIGRAN /01044801/ [Concomitant]
  9. CALCIUM VERLA [Concomitant]
  10. VIGANTOLETTEN /00318501/ [Concomitant]
  11. FORSTEO /00978701/ [Concomitant]
  12. ORTOTON /00047901/ [Concomitant]
  13. PASPERTIN /00041902/ [Concomitant]
  14. KREON /00014701/ [Concomitant]
  15. FERLECIT /01099901/ [Concomitant]
  16. KINZAL [Concomitant]
  17. METOHEXAL /00376902/ [Concomitant]
  18. TORACARD [Concomitant]
  19. PANTOZOL [Concomitant]
  20. DOXEPIN HCL [Concomitant]
  21. XALATAN [Concomitant]
  22. TALVOSILEN [Concomitant]

REACTIONS (23)
  - ABDOMINAL PAIN [None]
  - ALANINE AMINOTRANSFERASE INCREASED [None]
  - ANAEMIA [None]
  - ARTHRITIS [None]
  - ASPARTATE AMINOTRANSFERASE INCREASED [None]
  - BLOOD BILIRUBIN INCREASED [None]
  - BLOOD IRON INCREASED [None]
  - BLOOD LACTATE DEHYDROGENASE INCREASED [None]
  - BLOOD SODIUM DECREASED [None]
  - BLOOD THYROID STIMULATING HORMONE DECREASED [None]
  - BRONCHOPNEUMONIA [None]
  - DEPRESSION [None]
  - ELECTROCARDIOGRAM REPOLARISATION ABNORMALITY [None]
  - GASTRITIS [None]
  - HEADACHE [None]
  - HEPATOMEGALY [None]
  - HYPERTENSION [None]
  - HYPOKALAEMIA [None]
  - LYMPHADENOPATHY [None]
  - MEAN CELL HAEMOGLOBIN CONCENTRATION DECREASED [None]
  - MEAN CELL HAEMOGLOBIN DECREASED [None]
  - MEAN CELL VOLUME DECREASED [None]
  - OSTEOPOROSIS [None]
